FAERS Safety Report 6932388-1 (Version None)
Quarter: 2010Q3

REPORT INFORMATION
  Report Type: 
  Country: None (occurrence: None)
  Receive Date: 20100819
  Receipt Date: 20100817
  Transmission Date: 20110219
  Serious: Yes (Life-Threatening)
  Sender: FDA-Public Use
  Company Number: US-ROXANE LABORATORIES, INC.-2010-RO-01096RO

PATIENT
  Age: 28 Year
  Sex: Male
  Weight: 56 kg

DRUGS (7)
  1. MIDAZOLAM HCL [Suspect]
     Indication: CONVULSION
     Route: 042
  2. MIDAZOLAM HCL [Suspect]
     Route: 042
  3. LIDOCAINE [Suspect]
     Indication: LOCAL ANAESTHESIA
  4. LORAZEPAM [Suspect]
     Indication: CONVULSION
     Route: 042
  5. CEFAZOLIN [Suspect]
     Indication: PROPHYLAXIS
     Route: 042
  6. FENTANYL [Suspect]
     Route: 042
  7. BUPIVACAINE HCL [Suspect]
     Indication: LOCAL ANAESTHESIA

REACTIONS (2)
  - CARDIAC ARREST [None]
  - DRUG TOXICITY [None]
